FAERS Safety Report 8817118 (Version 1)
Quarter: 2012Q4

REPORT INFORMATION
  Report Type: Spontaneous
  Country: US (occurrence: None)
  Receive Date: 20121003
  Receipt Date: 20121003
  Transmission Date: 20130627
  Serious: Yes (Life-Threatening, Hospitalization)
  Sender: FDA-Public Use
  Company Number: None

PATIENT
  Age: 50 Year
  Sex: Female
  Weight: 75.3 kg

DRUGS (2)
  1. AVELOX [Suspect]
     Indication: NAUSEA
     Route: 048
     Dates: start: 20120310, end: 20120315
  2. AVELOX [Suspect]
     Indication: DIARRHOEA
     Route: 048
     Dates: start: 20120310, end: 20120315

REACTIONS (8)
  - Feeling abnormal [None]
  - Pharyngeal disorder [None]
  - Gastrointestinal disorder [None]
  - Gastrointestinal oedema [None]
  - White blood cell count increased [None]
  - Blood glucose increased [None]
  - Body temperature increased [None]
  - White blood cells urine positive [None]
